FAERS Safety Report 15272573 (Version 2)
Quarter: 2018Q3

REPORT INFORMATION
  Report Type: Spontaneous
  Country: US (occurrence: US)
  Receive Date: 20180813
  Receipt Date: 20180919
  Transmission Date: 20181010
  Serious: Yes (Other)
  Sender: FDA-Public Use
  Company Number: US-VERTEX PHARMACEUTICALS-2018-005591

PATIENT
  Sex: Male
  Weight: 33 kg

DRUGS (1)
  1. ORKAMBI [Suspect]
     Active Substance: IVACAFTOR\LUMACAFTOR
     Indication: CYSTIC FIBROSIS
     Dosage: 2 DOSAGE FORM (200/125 MG EACH), BID
     Route: 048
     Dates: start: 20171220, end: 20180710

REACTIONS (3)
  - Heart rate increased [Unknown]
  - Hepatic failure [Unknown]
  - Portal hypertension [Unknown]

NARRATIVE: CASE EVENT DATE: 2018
